FAERS Safety Report 18992207 (Version 1)
Quarter: 2021Q1

REPORT INFORMATION
  Report Type: Report from Study
  Country: US (occurrence: US)
  Receive Date: 20210310
  Receipt Date: 20210310
  Transmission Date: 20210420
  Serious: Yes (Other)
  Sender: FDA-Public Use
  Company Number: US-UCBSA-2020051041

PATIENT
  Age: 72 Year
  Sex: Female

DRUGS (2)
  1. BRIVARACETAM [Suspect]
     Active Substance: BRIVARACETAM
     Indication: EPILEPSY
     Dosage: 50 MILLIGRAM, 2X/DAY (BID)
     Route: 048
     Dates: start: 2020
  2. BRIVARACETAM [Suspect]
     Active Substance: BRIVARACETAM
     Indication: SEIZURE
     Dosage: 50 MILLIGRAM, ONCE DAILY (QD)
     Route: 048

REACTIONS (7)
  - Product availability issue [Unknown]
  - Therapy interrupted [Unknown]
  - Intentional product misuse [Unknown]
  - Fall [Unknown]
  - Head injury [Unknown]
  - Seizure [Not Recovered/Not Resolved]
  - Tremor [Not Recovered/Not Resolved]

NARRATIVE: CASE EVENT DATE: 20201206
